FAERS Safety Report 17135762 (Version 3)
Quarter: 2020Q1

REPORT INFORMATION
  Report Type: Spontaneous
  Country: PL (occurrence: PL)
  Receive Date: 20191210
  Receipt Date: 20200121
  Transmission Date: 20200409
  Serious: Yes (Hospitalization, Other)
  Sender: FDA-Public Use
  Company Number: PL-ACCORD-162306

PATIENT
  Age: 22 Year
  Sex: Male

DRUGS (3)
  1. CLOZAPINE. [Suspect]
     Active Substance: CLOZAPINE
     Indication: SCHIZOPHRENIA
     Dosage: GRADUALLY TO 100 MG/DAY ON DAY 15, REDUCED TO 50 MG/DAY AND DISCONTINUE
     Route: 048
  2. RISPERIDONE. [Suspect]
     Active Substance: RISPERIDONE
     Indication: SCHIZOPHRENIA
     Dosage: FROM 6 MG/DAY TO 4 MG/DAY ON DAY 15 TO 1 MG THREE TIMES A DAY AND DISCONTINUED
  3. VALPROIC ACID. [Suspect]
     Active Substance: VALPROIC ACID
     Indication: SCHIZOPHRENIA
     Dosage: MAINTAINED (600 MG TWICE A DAY)
     Route: 048

REACTIONS (6)
  - Alanine aminotransferase increased [Recovered/Resolved]
  - Myocarditis [Recovered/Resolved]
  - Monocytosis [Recovered/Resolved]
  - Neutrophilia [Recovered/Resolved]
  - Tachycardia [Recovered/Resolved]
  - Electrocardiogram repolarisation abnormality [Recovered/Resolved]
